FAERS Safety Report 11816230 (Version 2)
Quarter: 2016Q1

REPORT INFORMATION
  Report Type: Spontaneous
  Country: US (occurrence: US)
  Receive Date: 20151209
  Receipt Date: 20160106
  Transmission Date: 20160525
  Serious: Yes (Hospitalization, Other)
  Sender: FDA-Public Use
  Company Number: US-GILEAD-2015-0186752

PATIENT
  Sex: Female

DRUGS (1)
  1. ZYDELIG [Suspect]
     Active Substance: IDELALISIB
     Indication: B-CELL LYMPHOMA
     Dosage: UNKNOWN
     Route: 065

REACTIONS (4)
  - Hepatotoxicity [Unknown]
  - Blood bilirubin increased [Unknown]
  - International normalised ratio increased [Recovered/Resolved]
  - Jaundice [Unknown]
